FAERS Safety Report 19696576 (Version 1)
Quarter: 2021Q3

REPORT INFORMATION
  Report Type: Spontaneous
  Country: US (occurrence: US)
  Receive Date: 20210812
  Receipt Date: 20210812
  Transmission Date: 20211014
  Serious: Yes (Death)
  Sender: FDA-Public Use
  Company Number: None

PATIENT
  Age: 66 Year
  Sex: Female

DRUGS (1)
  1. CAPECITABINE 500 [Suspect]
     Active Substance: CAPECITABINE
     Dosage: 500MG :4 BID ORAL?
     Route: 048
     Dates: start: 20210728, end: 20210812

REACTIONS (1)
  - Death [None]

NARRATIVE: CASE EVENT DATE: 20210812
